FAERS Safety Report 7746392-7 (Version None)
Quarter: 2011Q3

REPORT INFORMATION
  Report Type: 
  Country: None (occurrence: None)
  Receive Date: 20110913
  Receipt Date: 20110913
  Transmission Date: 20111222
  Serious: Yes (Hospitalization)
  Sender: FDA-Public Use
  Company Number: None

PATIENT
  Age: 62 Year
  Sex: Male
  Weight: 103.4 kg

DRUGS (7)
  1. ALLOPURINOL [Concomitant]
     Route: 048
  2. ASPIRIN [Concomitant]
     Route: 048
  3. METOPROLOL TARTRATE [Concomitant]
     Route: 048
  4. FLUTICASONE PROPIONATE [Concomitant]
  5. ZOFRAN [Concomitant]
  6. BENDAMUSTINE [Suspect]
     Indication: CHRONIC LYMPHOCYTIC LEUKAEMIA
     Dosage: 90 MG/M2
     Route: 042
     Dates: start: 20110707, end: 20110708
  7. RITUXAN [Concomitant]
     Indication: CHRONIC LYMPHOCYTIC LEUKAEMIA
     Dosage: 900 MG/M2
     Route: 042
     Dates: start: 20110707, end: 20110707

REACTIONS (13)
  - OROPHARYNGEAL PAIN [None]
  - FATIGUE [None]
  - HYPERHIDROSIS [None]
  - SIMPLEX VIRUS TEST POSITIVE [None]
  - ORAL PAIN [None]
  - ORAL DISORDER [None]
  - WHITE BLOOD CELL COUNT DECREASED [None]
  - RHINORRHOEA [None]
  - ACQUIRED DIAPHRAGMATIC EVENTRATION [None]
  - FEBRILE NEUTROPENIA [None]
  - COUGH [None]
  - DECREASED APPETITE [None]
  - CHILLS [None]
